FAERS Safety Report 4584389-9 (Version None)
Quarter: 2005Q1

REPORT INFORMATION
  Report Type: 
  Country: None (occurrence: None)
  Receive Date: 20050125
  Receipt Date: 20041013
  Transmission Date: 20050727
  Serious: Yes (Hospitalization, Other)
  Sender: FDA-Public Use
  Company Number: USA040774139

PATIENT
  Age: 77 Year
  Sex: Female

DRUGS (25)
  1. FORTEO [Suspect]
     Indication: OSTEOPOROSIS
     Dosage: 20 UG DAY
     Dates: start: 20040422, end: 20040722
  2. DILTIAZEM [Concomitant]
  3. COZAAR [Concomitant]
  4. HYDRALAZINE [Concomitant]
  5. ATELEC (CILNIDIPINE) [Concomitant]
  6. NITROQUICK (GLYCERYL TRINITRATE) [Concomitant]
  7. ISORDIL [Concomitant]
  8. TICLID [Concomitant]
  9. ASPIRIN [Concomitant]
  10. ZOCOR [Concomitant]
  11. PRILOSEC [Concomitant]
  12. SINGULAIR (MONTELUKAST) [Concomitant]
  13. ALLEGRA [Concomitant]
  14. ALBUTEROL [Concomitant]
  15. ATROVENT [Concomitant]
  16. PULMICORT [Concomitant]
  17. ADVAIR DISKUS 100/50 [Concomitant]
  18. FLONASE [Concomitant]
  19. ATROVENT [Concomitant]
  20. POTASSIUM CHLORIDE [Concomitant]
  21. IRON SUPPLEMENT [Concomitant]
  22. MULTI-VITAMIN [Concomitant]
  23. MULTIVITAMIN [Concomitant]
  24. CALCIUM GLUCONATE [Concomitant]
  25. CATAPRES [Concomitant]

REACTIONS (3)
  - ANGINA PECTORIS [None]
  - HYPERTENSION [None]
  - RHINORRHOEA [None]
